FAERS Safety Report 6730188-9 (Version None)
Quarter: 2010Q2

REPORT INFORMATION
  Report Type: 
  Country: None (occurrence: None)
  Receive Date: 20100513
  Receipt Date: 20100506
  Transmission Date: 20101027
  Serious: Yes (Death, Hospitalization)
  Sender: FDA-Public Use
  Company Number: 99435

PATIENT
  Age: 60 Year
  Sex: Female

DRUGS (1)
  1. PENTOSTATIN [Suspect]
     Indication: T-CELL PROLYMPHOCYTIC LEUKAEMIA

REACTIONS (12)
  - ABDOMINAL PAIN [None]
  - AMNESIA [None]
  - CONFUSIONAL STATE [None]
  - DIFFUSE LARGE B-CELL LYMPHOMA [None]
  - EPSTEIN-BARR VIRUS ANTIBODY POSITIVE [None]
  - GASTROINTESTINAL HAEMORRHAGE [None]
  - HERPES ZOSTER [None]
  - LYMPHADENOPATHY [None]
  - MALIGNANT NEOPLASM PROGRESSION [None]
  - MENTAL STATUS CHANGES [None]
  - SUPERINFECTION BACTERIAL [None]
  - T-CELL PROLYMPHOCYTIC LEUKAEMIA [None]
